FAERS Safety Report 7655435-0 (Version None)
Quarter: 2011Q3

REPORT INFORMATION
  Report Type: 
  Country: None (occurrence: None)
  Receive Date: 20110804
  Receipt Date: 20110801
  Transmission Date: 20111222
  Serious: Yes (Other)
  Sender: FDA-Public Use
  Company Number: US-BAYER-2011-038717

PATIENT
  Age: 25 Year
  Sex: Female
  Weight: 92 kg

DRUGS (2)
  1. IBUPROFEN [Concomitant]
  2. MIRENA [Suspect]
     Indication: CONTRACEPTION
     Dosage: 20 ?G, CONT
     Route: 015
     Dates: start: 20110502, end: 20110502

REACTIONS (2)
  - DEVICE DIFFICULT TO USE [None]
  - DEVICE DISLOCATION [None]
